FAERS Safety Report 5897800-8 (Version None)
Quarter: 2008Q3

REPORT INFORMATION
  Report Type: 
  Country: None (occurrence: None)
  Receive Date: 20080924
  Receipt Date: 20080924
  Transmission Date: 20090109
  Serious: Yes (Hospitalization)
  Sender: FDA-Public Use
  Company Number: None

PATIENT
  Sex: Male
  Weight: 77.1115 kg

DRUGS (2)
  1. LEVAQUIN [Suspect]
     Indication: SINUSITIS
     Dosage: ONE DAILY
     Dates: start: 20070301, end: 20070301
  2. LEVAQUIN [Suspect]
     Indication: SINUSITIS
     Dosage: ONE DAILY
     Dates: start: 20080701, end: 20080701

REACTIONS (5)
  - HYPOAESTHESIA [None]
  - MENINGITIS ASEPTIC [None]
  - MYELITIS TRANSVERSE [None]
  - PARAESTHESIA [None]
  - URINARY RETENTION [None]
